FAERS Safety Report 8398086-5 (Version None)
Quarter: 2012Q2

REPORT INFORMATION
  Report Type: 
  Country: None (occurrence: None)
  Receive Date: 20120531
  Receipt Date: 20120521
  Transmission Date: 20120825
  Serious: Yes (Hospitalization, Other)
  Sender: FDA-Public Use
  Company Number: GB-ABBOTT-12P-167-0937207-00

PATIENT
  Sex: Male
  Weight: 114 kg

DRUGS (3)
  1. HUMIRA [Suspect]
     Indication: PSORIASIS
     Route: 058
     Dates: start: 20101122, end: 20120302
  2. LISINOPRIL [Concomitant]
     Indication: PRODUCT USED FOR UNKNOWN INDICATION
     Dates: start: 20100715
  3. METHOTREXATE [Concomitant]
     Indication: PRODUCT USED FOR UNKNOWN INDICATION

REACTIONS (13)
  - PETECHIAE [None]
  - NAUSEA [None]
  - RASH MACULAR [None]
  - ERYTHEMA [None]
  - DECREASED APPETITE [None]
  - SKIN DISCOLOURATION [None]
  - RASH [None]
  - MALAISE [None]
  - PHARYNGITIS [None]
  - COUGH [None]
  - COLD SWEAT [None]
  - TACHYCARDIA [None]
  - RASH MORBILLIFORM [None]
